FAERS Safety Report 16122496 (Version 1)
Quarter: 2019Q1

REPORT INFORMATION
  Report Type: Spontaneous
  Country: US (occurrence: US)
  Receive Date: 20190222
  Receipt Date: 20190222
  Transmission Date: 20190418
  Serious: No
  Sender: FDA-Public Use
  Company Number: None

PATIENT
  Age: 64 Year
  Sex: Female
  Weight: 96.62 kg

DRUGS (9)
  1. VITAMIN C [Concomitant]
     Active Substance: ASCORBIC ACID
  2. MAGNESIUM [Concomitant]
     Active Substance: MAGNESIUM
  3. B-1 [Concomitant]
  4. QUETIAPINE TAB 200MG [Suspect]
     Active Substance: QUETIAPINE
     Indication: DEPRESSION
     Dosage: ?          QUANTITY:200 MG MILLIGRAM(S);?
     Route: 048
     Dates: start: 20180415, end: 20190211
  5. B-6 [Concomitant]
  6. VITAMINS [Concomitant]
     Active Substance: VITAMINS
  7. CALCIUM [Concomitant]
     Active Substance: CALCIUM
  8. ZINC. [Concomitant]
     Active Substance: ZINC
  9. VITAMIN B12 [Concomitant]
     Active Substance: CYANOCOBALAMIN

REACTIONS (10)
  - Blood pressure abnormal [None]
  - Product substitution issue [None]
  - Confusional state [None]
  - Liver disorder [None]
  - Respiratory disorder [None]
  - Musculoskeletal stiffness [None]
  - Cardiac disorder [None]
  - Abdominal distension [None]
  - Abdominal pain upper [None]
  - Pancreatic disorder [None]

NARRATIVE: CASE EVENT DATE: 20180418
